FAERS Safety Report 9876623 (Version 7)
Quarter: 2015Q3

REPORT INFORMATION
  Report Type: Other
  Country: US (occurrence: US)
  Receive Date: 20140206
  Receipt Date: 20150824
  Transmission Date: 20151125
  Serious: No
  Sender: FDA-Public Use
  Company Number: US-ACORDA-ACO_35331_2013

PATIENT
  Age: 48 Year
  Sex: Female
  Weight: 53.97 kg

DRUGS (13)
  1. AMPYRA [Suspect]
     Active Substance: DALFAMPRIDINE
     Indication: GAIT DISTURBANCE
     Dosage: 10 MG, BID
     Route: 048
     Dates: start: 20120621
  2. AMPYRA [Suspect]
     Active Substance: DALFAMPRIDINE
     Dosage: 10MG ONE TAB TWICE DAILY
     Route: 048
     Dates: start: 20130903
  3. AMPYRA [Suspect]
     Active Substance: DALFAMPRIDINE
     Dosage: 10 MG, HS
     Route: 048
  4. OXYBUTYNIN CHLORIDE. [Suspect]
     Active Substance: OXYBUTYNIN CHLORIDE
     Indication: PRODUCT USED FOR UNKNOWN INDICATION
     Dosage: UNK
     Route: 065
  5. COPAXONE [Suspect]
     Active Substance: GLATIRAMER ACETATE
     Indication: PRODUCT USED FOR UNKNOWN INDICATION
     Dosage: UNK, WEEKLY
     Route: 065
     Dates: start: 2010, end: 2013
  6. LITHIUM. [Concomitant]
     Active Substance: LITHIUM
     Indication: PRODUCT USED FOR UNKNOWN INDICATION
     Dosage: UNK
  7. MINOCYCLINE HCL [Concomitant]
     Active Substance: MINOCYCLINE HYDROCHLORIDE
     Indication: PRODUCT USED FOR UNKNOWN INDICATION
     Dosage: UNK
     Route: 065
  8. AMPYRA [Suspect]
     Active Substance: DALFAMPRIDINE
     Dosage: 10 MG, BID
     Route: 048
  9. TECFIDERA [Concomitant]
     Active Substance: DIMETHYL FUMARATE
     Indication: MULTIPLE SCLEROSIS
     Dosage: 120 MG, BID
     Route: 048
     Dates: start: 20131015, end: 20131021
  10. REMERON [Concomitant]
     Active Substance: MIRTAZAPINE
     Indication: PRODUCT USED FOR UNKNOWN INDICATION
     Dosage: UNK
  11. CLONAZEPAM. [Concomitant]
     Active Substance: CLONAZEPAM
     Indication: PRODUCT USED FOR UNKNOWN INDICATION
     Dosage: UNK
  12. TECFIDERA [Concomitant]
     Active Substance: DIMETHYL FUMARATE
     Dosage: 240 MG, BID
     Route: 048
     Dates: start: 20131022
  13. NAPROXEN. [Concomitant]
     Active Substance: NAPROXEN
     Indication: PRODUCT USED FOR UNKNOWN INDICATION
     Route: 065

REACTIONS (12)
  - Rash [Unknown]
  - Flushing [Unknown]
  - Peripheral swelling [Recovered/Resolved]
  - Pain in extremity [Recovered/Resolved]
  - Multiple sclerosis [Not Recovered/Not Resolved]
  - Balance disorder [Recovered/Resolved]
  - Fall [Recovered/Resolved]
  - Pruritus [Unknown]
  - Hot flush [Unknown]
  - Hemiparesis [Recovering/Resolving]
  - Fall [Recovered/Resolved]
  - Drug dose omission [Recovered/Resolved]

NARRATIVE: CASE EVENT DATE: 201402
